FAERS Safety Report 15648113 (Version 1)
Quarter: 2018Q4

REPORT INFORMATION
  Report Type: Spontaneous
  Country: US (occurrence: US)
  Receive Date: 20181122
  Receipt Date: 20181122
  Transmission Date: 20190205
  Serious: No
  Sender: FDA-Public Use
  Company Number: US-PFIZER INC-2018465173

PATIENT
  Age: 74 Year
  Sex: Female
  Weight: 74.84 kg

DRUGS (1)
  1. XELJANZ [Suspect]
     Active Substance: TOFACITINIB CITRATE
     Dosage: UNK
     Dates: start: 2018

REACTIONS (6)
  - Pain in extremity [Unknown]
  - Musculoskeletal pain [Unknown]
  - Peripheral swelling [Unknown]
  - Gait inability [Unknown]
  - Pain [Unknown]
  - Musculoskeletal disorder [Unknown]
